FAERS Safety Report 7797091-7 (Version None)
Quarter: 2011Q4

REPORT INFORMATION
  Report Type: 
  Country: None (occurrence: None)
  Receive Date: 20111003
  Receipt Date: 20110920
  Transmission Date: 20120403
  Serious: Yes (Death, Disabling)
  Sender: FDA-Public Use
  Company Number: GB-ACCORD-009349

PATIENT
  Age: 49 Year
  Sex: Female
  Weight: 75 kg

DRUGS (5)
  1. DOCETAXEL [Suspect]
     Indication: BREAST CANCER METASTATIC
     Dosage: 180.00-MG-1.00 TIMES PER-3.0WEEKS/INTRAVENOUS (NOT OTHERWISE SPECIFIED)
     Route: 042
     Dates: start: 20100216, end: 20110211
  2. LANSOPRAZOLE [Concomitant]
  3. AVASTIN [Suspect]
     Indication: BREAST CANCER METASTATIC
     Dosage: 1000.00-MG-1.00 TIMES/INTRAVENOUS (NOT OTHERWISE SPECIFIED)
     Route: 042
     Dates: start: 20110106, end: 20110211
  4. DEXAMETHASONE [Concomitant]
  5. CAPECITABINE [Suspect]
     Indication: BREAST CANCER METASTATIC
     Dosage: 2300.00-MG/ORAL
     Route: 048
     Dates: start: 20100317, end: 20110428

REACTIONS (1)
  - PALMAR-PLANTAR ERYTHRODYSAESTHESIA SYNDROME [None]
